FAERS Safety Report 13177405 (Version 1)
Quarter: 2017Q1

REPORT INFORMATION
  Report Type: Report from Study
  Country: US (occurrence: US)
  Receive Date: 20170201
  Receipt Date: 20170201
  Transmission Date: 20170428
  Serious: Yes (Hospitalization)
  Sender: FDA-Public Use
  Company Number: US-EXELIXIS-CABO-16006128

PATIENT
  Sex: Female

DRUGS (1)
  1. COMETRIQ [Suspect]
     Active Substance: CABOZANTINIB S-MALATE
     Indication: SOFT TISSUE NEOPLASM
     Dosage: 140 MG, QD
     Route: 048
     Dates: start: 20160102, end: 201602

REACTIONS (3)
  - Off label use [Unknown]
  - Drug intolerance [Unknown]
  - Pulmonary embolism [Unknown]
